FAERS Safety Report 18480740 (Version 3)
Quarter: 2020Q4

REPORT INFORMATION
  Report Type: Report from Study
  Country: LB (occurrence: LB)
  Receive Date: 20201109
  Receipt Date: 20201118
  Transmission Date: 20210114
  Serious: Yes (Hospitalization)
  Sender: FDA-Public Use
  Company Number: LB-PFIZER INC-2020432132

PATIENT
  Age: 46 Year
  Sex: Female
  Weight: 78 kg

DRUGS (13)
  1. OXALIPLATIN. [Suspect]
     Active Substance: OXALIPLATIN
     Dosage: 164.05 MG
     Route: 042
     Dates: start: 20201020
  2. RECTOGESIC [GLYCERYL TRINITRATE] [Concomitant]
     Active Substance: NITROGLYCERIN
     Indication: ANAL FISSURE
     Dosage: 4 MG, 2X/DAY
     Route: 061
     Dates: start: 20201014
  3. NEUPOGEN [Concomitant]
     Active Substance: FILGRASTIM
     Indication: PROPHYLAXIS
     Dosage: 300 UG, 1X/DAY
     Route: 058
     Dates: start: 20201009, end: 20201011
  4. LEUCOVORIN. [Suspect]
     Active Substance: LEUCOVORIN
     Indication: RECTAL ADENOCARCINOMA
     Dosage: 764 MG
     Route: 042
     Dates: start: 20200922
  5. CIPRALEX [Concomitant]
     Active Substance: ESCITALOPRAM OXALATE
     Indication: DEPRESSION
     Dosage: 10 MG, 1X/DAY
     Route: 048
  6. AVELUMAB [Suspect]
     Active Substance: AVELUMAB
     Dosage: 820 MG
     Route: 042
     Dates: start: 20201020
  7. GLUCOPHAGE [Concomitant]
     Active Substance: METFORMIN HYDROCHLORIDE
     Indication: DIABETES MELLITUS
     Dosage: 1000 MG, 1X/DAY
     Route: 048
     Dates: start: 202003
  8. OXALIPLATIN. [Suspect]
     Active Substance: OXALIPLATIN
     Indication: RECTAL ADENOCARCINOMA
     Dosage: 162.35 MG
     Route: 042
     Dates: start: 20200922
  9. AVELUMAB [Suspect]
     Active Substance: AVELUMAB
     Indication: RECTAL ADENOCARCINOMA
     Dosage: 800 MG
     Route: 042
     Dates: start: 20200922
  10. FLUOROURACIL. [Suspect]
     Active Substance: FLUOROURACIL
     Indication: RECTAL ADENOCARCINOMA
     Dosage: 4584 MG
     Route: 042
     Dates: start: 20200922
  11. FLUOROURACIL. [Suspect]
     Active Substance: FLUOROURACIL
     Dosage: 4632 MG
     Route: 042
     Dates: start: 20201020
  12. LEUCOVORIN. [Suspect]
     Active Substance: LEUCOVORIN
     Dosage: 772 MG
     Route: 042
     Dates: start: 20201020
  13. XIGDUO XR [Concomitant]
     Active Substance: DAPAGLIFLOZIN PROPANEDIOL\METFORMIN HYDROCHLORIDE
     Indication: DIABETES MELLITUS
     Dosage: 10-1000 MG
     Route: 048
     Dates: start: 202003

REACTIONS (1)
  - Urinary tract infection [Recovered/Resolved]

NARRATIVE: CASE EVENT DATE: 20201025
